FAERS Safety Report 5875227-2 (Version None)
Quarter: 2008Q3

REPORT INFORMATION
  Report Type: 
  Country: None (occurrence: None)
  Receive Date: 20080904
  Receipt Date: 20080825
  Transmission Date: 20090109
  Serious: Yes (Hospitalization)
  Sender: FDA-Public Use
  Company Number: 237227J08USA

PATIENT
  Age: 26 Year
  Sex: Female
  Weight: 65.318 kg

DRUGS (6)
  1. REBIF [Suspect]
     Indication: MULTIPLE SCLEROSIS
     Dosage: 44 MCG, 3 IN 1 WEEKS, SUBCUTANEOUS
     Route: 058
     Dates: start: 20080507
  2. IMITREX [Concomitant]
  3. PAROXETINE HCL [Concomitant]
  4. ALPRAZOLAM [Concomitant]
  5. TIZANIDINE HCL [Concomitant]
  6. HYDROXYZINE [Concomitant]

REACTIONS (3)
  - CONVULSION [None]
  - DYSARTHRIA [None]
  - MUSCLE SPASMS [None]
